FAERS Safety Report 5738910-5 (Version None)
Quarter: 2008Q2

REPORT INFORMATION
  Report Type: 
  Country: None (occurrence: None)
  Receive Date: 20080513
  Receipt Date: 20080430
  Transmission Date: 20081010
  Serious: Yes (Hospitalization)
  Sender: FDA-Public Use
  Company Number: 2007BI024792

PATIENT
  Age: 62 Year
  Sex: Female
  Weight: 58.9676 kg

DRUGS (1)
  1. AVONEX [Suspect]
     Indication: MULTIPLE SCLEROSIS
     Dosage: 30 UG;QW;IM
     Route: 030
     Dates: start: 19981201, end: 20040701

REACTIONS (4)
  - ARTERIAL OCCLUSIVE DISEASE [None]
  - IMPAIRED HEALING [None]
  - LUNG NEOPLASM MALIGNANT [None]
  - WOUND [None]
